FAERS Safety Report 14305207 (Version 5)
Quarter: 2018Q1

REPORT INFORMATION
  Report Type: Spontaneous
  Country: IT (occurrence: IT)
  Receive Date: 20171219
  Receipt Date: 20180123
  Transmission Date: 20180509
  Serious: Yes (Other)
  Sender: FDA-Public Use
  Company Number: IT-PFIZER INC-2017532105

PATIENT
  Age: 53 Year
  Sex: Female

DRUGS (2)
  1. TAVOR (LORAZEPAM) [Suspect]
     Active Substance: LORAZEPAM
     Dosage: 2 DF TOTAL/SINGLE
     Route: 048
     Dates: start: 20171030, end: 20171030
  2. LASIX [Concomitant]
     Active Substance: FUROSEMIDE
     Dosage: 1 DF, UNK
     Route: 048

REACTIONS (6)
  - Sopor [Recovered/Resolved]
  - Hypokinesia [Recovered/Resolved]
  - Asthenia [Recovered/Resolved]
  - Accidental exposure to product [Recovered/Resolved]
  - Vomiting [Recovered/Resolved]
  - Bradyphrenia [Recovered/Resolved]

NARRATIVE: CASE EVENT DATE: 20171030
